FAERS Safety Report 10203925 (Version 1)
Quarter: 2014Q2

REPORT INFORMATION
  Report Type: Spontaneous
  Country: PL (occurrence: PL)
  Receive Date: 20140529
  Receipt Date: 20140529
  Transmission Date: 20141212
  Serious: Yes (Other)
  Sender: FDA-Public Use
  Company Number: PL-BAYER-2014-074043

PATIENT
  Age: 43 Year
  Sex: Female
  Weight: 87 kg

DRUGS (4)
  1. GADOVIST [Suspect]
     Indication: NUCLEAR MAGNETIC RESONANCE IMAGING
     Dosage: 8.7 ML, ONCE
     Route: 042
     Dates: start: 20140224, end: 20140224
  2. CALCIUM CHLORATUM [Concomitant]
     Dosage: UNK
     Route: 042
  3. DEXAVEN [Concomitant]
     Dosage: 4 MG, UNK
     Route: 042
  4. PHENAZOLINUM [Concomitant]
     Route: 030

REACTIONS (3)
  - Anxiety [Recovered/Resolved]
  - Rash erythematous [Recovered/Resolved]
  - Dyspnoea [Recovered/Resolved]
